FAERS Safety Report 14368647 (Version 3)
Quarter: 2018Q1

REPORT INFORMATION
  Report Type: Spontaneous
  Country: US (occurrence: US)
  Receive Date: 20180109
  Receipt Date: 20180329
  Transmission Date: 20180509
  Serious: No
  Sender: FDA-Public Use
  Company Number: US-PFIZER INC-2016184672

PATIENT
  Age: 75 Year
  Sex: Female
  Weight: 84.81 kg

DRUGS (2)
  1. TIKOSYN [Suspect]
     Active Substance: DOFETILIDE
     Indication: ARRHYTHMIA
     Dosage: 250 UG, 2X/DAY (ONE IN THE MORNING AND ONE AT NIGHT)
     Route: 048
     Dates: start: 2017, end: 201712
  2. TIKOSYN [Suspect]
     Active Substance: DOFETILIDE
     Indication: ATRIAL FIBRILLATION
     Dosage: 250 UG, 2X/DAY (1 CAPSULE TWICE A DAY)
     Route: 048

REACTIONS (6)
  - Drug effect incomplete [Unknown]
  - Memory impairment [Unknown]
  - Decreased appetite [Unknown]
  - Feeling abnormal [Unknown]
  - Weight decreased [Unknown]
  - Back pain [Unknown]
